FAERS Safety Report 15318046 (Version 2)
Quarter: 2018Q3

REPORT INFORMATION
  Report Type: Spontaneous
  Country: BR (occurrence: BR)
  Receive Date: 20180825
  Receipt Date: 20180907
  Transmission Date: 20181010
  Serious: Yes (Other)
  Sender: FDA-Public Use
  Company Number: BR-ABBVIE-18K-020-2435974-00

PATIENT
  Age: 19 Year
  Sex: Male
  Weight: 75 kg

DRUGS (5)
  1. HUMIRA [Suspect]
     Active Substance: ADALIMUMAB
     Indication: CROHN^S DISEASE
     Dosage: WEEK 0?LOADING DOSE
     Route: 058
     Dates: start: 20170727, end: 20170727
  2. HUMIRA [Suspect]
     Active Substance: ADALIMUMAB
     Route: 058
     Dates: start: 20180721
  3. AZATHIOPRINE. [Concomitant]
     Active Substance: AZATHIOPRINE
     Indication: CROHN^S DISEASE
     Route: 048
     Dates: start: 201608
  4. HUMIRA [Suspect]
     Active Substance: ADALIMUMAB
     Dosage: WEEK 2?LOADING DOSE
     Route: 058
     Dates: start: 201708, end: 201708
  5. HUMIRA [Suspect]
     Active Substance: ADALIMUMAB
     Dosage: DOSE INCREASED
     Route: 058

REACTIONS (5)
  - Crohn^s disease [Unknown]
  - Faecal calprotectin increased [Not Recovered/Not Resolved]
  - Gastrointestinal inflammation [Not Recovered/Not Resolved]
  - Stool analysis abnormal [Unknown]
  - Drug ineffective [Unknown]

NARRATIVE: CASE EVENT DATE: 201807
